FAERS Safety Report 6444249-5 (Version None)
Quarter: 2009Q4

REPORT INFORMATION
  Report Type: 
  Country: None (occurrence: None)
  Receive Date: 20091118
  Receipt Date: 20091109
  Transmission Date: 20100525
  Serious: Yes (Other)
  Sender: FDA-Public Use
  Company Number: BR-ROCHE-667720

PATIENT
  Sex: Female
  Weight: 61 kg

DRUGS (6)
  1. RIVOTRIL [Suspect]
     Indication: TINNITUS
     Route: 048
     Dates: start: 20080801
  2. RIVOTRIL [Suspect]
     Route: 048
  3. RIVOTRIL [Suspect]
     Route: 048
  4. RIVOTRIL [Suspect]
     Dosage: BATCH/LOT NO. RJ0605
     Route: 048
     Dates: start: 20091001
  5. LABIRIN [Concomitant]
     Indication: LABYRINTHITIS
     Dosage: DOSE: 8 MG
  6. ATACAND HCT [Concomitant]
     Indication: HYPERTENSION
     Dosage: DOSE: 16/12.5 MG; FREQUENCY: HALF TABLET PER DAY
     Dates: start: 20070101

REACTIONS (12)
  - ABDOMINAL PAIN [None]
  - ABDOMINAL PAIN UPPER [None]
  - ASTHENIA [None]
  - DIZZINESS [None]
  - DRUG INEFFECTIVE [None]
  - HEART RATE INCREASED [None]
  - HUNGER [None]
  - JOINT RANGE OF MOTION DECREASED [None]
  - MALAISE [None]
  - MENSTRUAL DISORDER [None]
  - NAUSEA [None]
  - POLYP [None]
